FAERS Safety Report 4966540-1 (Version None)
Quarter: 2006Q1

REPORT INFORMATION
  Report Type: 
  Country: None (occurrence: None)
  Receive Date: 20060201
  Receipt Date: 20051219
  Transmission Date: 20060701
  Serious: No
  Sender: FDA-Public Use
  Company Number: 2005PV006032

PATIENT
  Age: 65 Year
  Sex: Male
  Weight: 95.2554 kg

DRUGS (12)
  1. BYETTA [Suspect]
     Indication: DIABETES MELLITUS NON-INSULIN-DEPENDENT
     Dosage: SEE IMAGE
     Route: 058
     Dates: start: 20050701, end: 20050801
  2. BYETTA [Suspect]
     Indication: DIABETES MELLITUS NON-INSULIN-DEPENDENT
     Dosage: SEE IMAGE
     Route: 058
     Dates: start: 20050802, end: 20051201
  3. LANTUS [Concomitant]
  4. DILTIAZEM [Concomitant]
  5. ZOCOR [Concomitant]
  6. GLIPIZIDE [Concomitant]
  7. METOCLOPRAMIDE [Concomitant]
  8. ALTACE [Concomitant]
  9. PREVACID [Concomitant]
  10. VITAMIN B COMPLEX CAP [Concomitant]
  11. ASPIRIN [Concomitant]
  12. IBUPROFEN [Concomitant]

REACTIONS (7)
  - ASTHENIA [None]
  - DEPRESSED LEVEL OF CONSCIOUSNESS [None]
  - FATIGUE [None]
  - GAIT DISTURBANCE [None]
  - POSTURE ABNORMAL [None]
  - SOMNOLENCE [None]
  - TREMOR [None]
